FAERS Safety Report 8775637 (Version 1)
Quarter: 2012Q4

REPORT INFORMATION
  Report Type: 
  Country: BR (occurrence: BR)
  Receive Date: 20120910
  Receipt Date: 20120910
  Transmission Date: 20130627
  Serious: Yes (Hospitalization)
  Sender: FDA-Public Use
  Company Number: BR-BRISTOL-MYERS SQUIBB COMPANY-16926925

PATIENT
  Age: 32 Year
  Sex: Male

DRUGS (2)
  1. ABILIFY TABS [Suspect]
     Indication: SCHIZOPHRENIA
     Dosage: resumed treatment with aripiprazole 2 tablets of 15 mg per day orally
     Route: 048
  2. ZYPREXA [Concomitant]
     Dates: start: 2012

REACTIONS (1)
  - Schizophrenia [Unknown]
